FAERS Safety Report 8875176 (Version 1)
Quarter: 2012Q4

REPORT INFORMATION
  Report Type: 
  Country: US (occurrence: US)
  Receive Date: 20121030
  Receipt Date: 20121030
  Transmission Date: 20130627
  Serious: Yes (Other)
  Sender: FDA-Public Use
  Company Number: US-ROCHE-1140339

PATIENT
  Sex: Male
  Weight: 30 kg

DRUGS (2)
  1. NUTROPIN AQ [Suspect]
     Indication: GROWTH HORMONE DEFICIENCY
     Route: 058
  2. PREDNISONE [Concomitant]

REACTIONS (3)
  - Renal failure chronic [Unknown]
  - Peritonitis [Unknown]
  - Anaemia [Unknown]
